FAERS Safety Report 24165917 (Version 2)
Quarter: 2024Q3

REPORT INFORMATION
  Report Type: Spontaneous
  Country: JP (occurrence: JP)
  Receive Date: 20240802
  Receipt Date: 20240902
  Transmission Date: 20241016
  Serious: Yes (Death, Other)
  Sender: AMGEN
  Company Number: JP-AMGEN-JPNSP2024134714

PATIENT
  Age: 73 Year
  Sex: Female

DRUGS (1)
  1. BLINCYTO [Suspect]
     Active Substance: BLINATUMOMAB
     Indication: Acute lymphocytic leukaemia
     Dosage: 9 MICROGRAM, QD, 24-HR IV DRIP INFUSION
     Route: 042
     Dates: start: 20240701, end: 20240703

REACTIONS (4)
  - Cytokine release syndrome [Not Recovered/Not Resolved]
  - Tumour lysis syndrome [Unknown]
  - Acute lymphocytic leukaemia [Fatal]
  - Infection [Fatal]

NARRATIVE: CASE EVENT DATE: 20240701
